FAERS Safety Report 12066698 (Version 3)
Quarter: 2016Q1

REPORT INFORMATION
  Report Type: Report from Study
  Country: CA (occurrence: CA)
  Receive Date: 20160211
  Receipt Date: 20160314
  Transmission Date: 20160526
  Serious: Yes (Death, Hospitalization, Other)
  Sender: FDA-Public Use
  Company Number: PHHY2015CA136707

PATIENT
  Age: 88 Year
  Sex: Male

DRUGS (2)
  1. SANDOSTATIN [Suspect]
     Active Substance: OCTREOTIDE ACETATE
     Indication: METASTATIC CARCINOID TUMOUR
     Dosage: ONCE, TEST DOSE
     Route: 058
     Dates: start: 20150902, end: 20150902
  2. SANDOSTATIN LAR DEPOT [Suspect]
     Active Substance: OCTREOTIDE ACETATE
     Indication: METASTATIC CARCINOID TUMOUR
     Dosage: 30 MG, QMO (EVERY 4 WEEKS)
     Route: 030
     Dates: start: 20150917, end: 20160203

REACTIONS (20)
  - Asthenia [Unknown]
  - Pulse abnormal [Unknown]
  - Red blood cell count decreased [Unknown]
  - Pain [Unknown]
  - Presyncope [Unknown]
  - Joint swelling [Unknown]
  - Intestinal perforation [Unknown]
  - Blood pressure diastolic decreased [Unknown]
  - Heart rate irregular [Unknown]
  - Death [Fatal]
  - Haemoglobin decreased [Unknown]
  - Oedema [Unknown]
  - Vomiting [Unknown]
  - Decreased appetite [Unknown]
  - Malaise [Unknown]
  - Fatigue [Unknown]
  - Blood pressure systolic increased [Unknown]
  - Tinnitus [Unknown]
  - Body temperature decreased [Unknown]
  - Diarrhoea [Unknown]

NARRATIVE: CASE EVENT DATE: 20151004
